FAERS Safety Report 14079997 (Version 2)
Quarter: 2018Q1

REPORT INFORMATION
  Report Type: Report from Study
  Country: ES (occurrence: ES)
  Receive Date: 20171012
  Receipt Date: 20180316
  Transmission Date: 20180508
  Serious: No
  Sender: FDA-Public Use
  Company Number: ES-JNJFOC-20171009259

PATIENT

DRUGS (1)
  1. STELARA [Suspect]
     Active Substance: USTEKINUMAB
     Indication: PSORIATIC ARTHROPATHY
     Route: 058

REACTIONS (4)
  - Oropharyngeal candidiasis [Unknown]
  - Gastroenteritis viral [Unknown]
  - Prostatic specific antigen increased [Unknown]
  - Upper respiratory tract infection [Unknown]
